FAERS Safety Report 6889665-2 (Version None)
Quarter: 2010Q3

REPORT INFORMATION
  Report Type: 
  Country: None (occurrence: None)
  Receive Date: 20100730
  Receipt Date: 20080327
  Transmission Date: 20110219
  Serious: No
  Sender: FDA-Public Use
  Company Number: US-PFIZER INC-2008028149

PATIENT
  Sex: Male
  Weight: 81.363 kg

DRUGS (3)
  1. LIPITOR [Suspect]
     Indication: HYPERLIPIDAEMIA
  2. THYROID HORMONES [Concomitant]
  3. PRILOSEC [Concomitant]

REACTIONS (1)
  - HEPATIC FUNCTION ABNORMAL [None]
